FAERS Safety Report 23249139 (Version 2)
Quarter: 2024Q3

REPORT INFORMATION
  Report Type: Spontaneous
  Country: AU (occurrence: AU)
  Receive Date: 20231201
  Receipt Date: 20240920
  Transmission Date: 20241016
  Serious: Yes (Other)
  Sender: BRISTOL MYERS SQUIBB
  Company Number: AU-BRISTOL-MYERS SQUIBB COMPANY-2023-173389

PATIENT
  Age: 67 Year
  Sex: Male

DRUGS (12)
  1. REVLIMID [Suspect]
     Active Substance: LENALIDOMIDE
     Indication: Non-Hodgkin^s lymphoma
     Dates: start: 20200626, end: 20210621
  2. BENDAMUSTINE HYDROCHLORIDE [Suspect]
     Active Substance: BENDAMUSTINE HYDROCHLORIDE
     Indication: Non-Hodgkin^s lymphoma
     Dates: start: 20171219, end: 20180418
  3. CYCLOPHOSPHAMIDE [Suspect]
     Active Substance: CYCLOPHOSPHAMIDE
     Indication: Non-Hodgkin^s lymphoma
     Dates: start: 20110301, end: 20120601
  4. DOXORUBICIN HYDROCHLORIDE [Suspect]
     Active Substance: DOXORUBICIN HYDROCHLORIDE
     Indication: Non-Hodgkin^s lymphoma
     Dates: start: 20110301, end: 20120601
  5. PREDNISOLONE [Suspect]
     Active Substance: PREDNISOLONE
     Indication: Non-Hodgkin^s lymphoma
  6. RITUXIMAB [Suspect]
     Active Substance: RITUXIMAB
     Indication: Non-Hodgkin^s lymphoma
     Dates: start: 20110301, end: 20120601
  7. RITUXIMAB [Suspect]
     Active Substance: RITUXIMAB
     Dates: start: 20171219, end: 20180418
  8. RITUXIMAB [Suspect]
     Active Substance: RITUXIMAB
     Dates: start: 20200626, end: 20210621
  9. UBLITUXIMAB [Suspect]
     Active Substance: UBLITUXIMAB
     Indication: Non-Hodgkin^s lymphoma
     Dates: start: 20210719, end: 20221101
  10. UMBRALISIB [Suspect]
     Active Substance: UMBRALISIB
     Indication: Non-Hodgkin^s lymphoma
     Dates: start: 20210719, end: 20221101
  11. VINCRISTINE SULFATE [Suspect]
     Active Substance: VINCRISTINE SULFATE
     Indication: Non-Hodgkin^s lymphoma
     Dates: start: 20110301, end: 20120601
  12. VINBLASTINE SULFATE [Suspect]
     Active Substance: VINBLASTINE SULFATE
     Indication: Non-Hodgkin^s lymphoma

REACTIONS (17)
  - Anisocytosis [Unknown]
  - B-lymphocyte count decreased [Unknown]
  - Cryptococcosis [Unknown]
  - Malignant neoplasm progression [Unknown]
  - Gastrointestinal toxicity [Unknown]
  - Glomerular filtration rate decreased [Unknown]
  - Immunodeficiency common variable [Unknown]
  - Lethargy [Unknown]
  - Non-Hodgkin^s lymphoma recurrent [Unknown]
  - Non-Hodgkin^s lymphoma refractory [Unknown]
  - Pancytopenia [Unknown]
  - Pyrexia [Unknown]
  - Renal impairment [Unknown]
  - Respiratory symptom [Unknown]
  - Staphylococcal bacteraemia [Unknown]
  - Treatment failure [Unknown]
  - Anaemia [Unknown]

NARRATIVE: CASE EVENT DATE: 20171101
